FAERS Safety Report 5931209-3 (Version None)
Quarter: 2008Q4

REPORT INFORMATION
  Report Type: 
  Country: None (occurrence: None)
  Receive Date: 20081027
  Receipt Date: 20081021
  Transmission Date: 20090506
  Serious: Yes (Death)
  Sender: FDA-Public Use
  Company Number: PHHY2008JP23274

PATIENT
  Age: 78 Year
  Sex: Male

DRUGS (6)
  1. NEORAL [Suspect]
     Indication: HEPATITIS B
     Dosage: 200 MG PER DAY
     Dates: start: 20071215
  2. PREDNISOLONE [Suspect]
     Indication: HEPATITIS B
     Dosage: UNK
     Dates: start: 20071215
  3. VINCRISTINE [Concomitant]
  4. RITUXIMAB [Concomitant]
  5. LAMIVUDINE [Concomitant]
  6. ENTECAVIR [Concomitant]

REACTIONS (2)
  - PNEUMOCYSTIS JIROVECI PNEUMONIA [None]
  - RESPIRATORY FAILURE [None]
